FAERS Safety Report 6226351-6 (Version None)
Quarter: 2009Q2

REPORT INFORMATION
  Report Type: 
  Country: None (occurrence: None)
  Receive Date: 20090612
  Receipt Date: 20090605
  Transmission Date: 20091009
  Serious: Yes (Other)
  Sender: FDA-Public Use
  Company Number: US-JNJFOC-20090602967

PATIENT
  Age: 59 Year
  Sex: Female
  Weight: 74.84 kg

DRUGS (3)
  1. FENTANYL TRANSDERMAL SYSTEM [Suspect]
     Indication: BACK PAIN
     Route: 062
  2. LORTAB [Concomitant]
     Indication: PAIN
  3. PREMARIN [Concomitant]
     Indication: HORMONE REPLACEMENT THERAPY
     Route: 048

REACTIONS (9)
  - CONTUSION [None]
  - HYPOTONIA [None]
  - LOSS OF CONSCIOUSNESS [None]
  - PALPITATIONS [None]
  - PRODUCT QUALITY ISSUE [None]
  - SNEEZING [None]
  - WEIGHT DECREASED [None]
  - WITHDRAWAL SYNDROME [None]
  - WRONG TECHNIQUE IN DRUG USAGE PROCESS [None]
